FAERS Safety Report 17142562 (Version 1)
Quarter: 2019Q4

REPORT INFORMATION
  Report Type: Spontaneous
  Country: US (occurrence: US)
  Receive Date: 20191211
  Receipt Date: 20191211
  Transmission Date: 20200122
  Serious: Yes (Death, Hospitalization, Other)
  Sender: FDA-Public Use
  Company Number: US-PURDUE PHARMA-USA-2019-0149293

PATIENT
  Sex: Male

DRUGS (1)
  1. OXYCONTIN [Suspect]
     Active Substance: OXYCODONE HYDROCHLORIDE
     Indication: NECK PAIN
     Dosage: UNK
     Route: 048

REACTIONS (11)
  - Gastric cancer [Recovered/Resolved]
  - Death [Fatal]
  - Unevaluable event [Recovered/Resolved]
  - Drug dependence [Recovered/Resolved]
  - Intestinal obstruction [Recovered/Resolved]
  - Withdrawal syndrome [Recovered/Resolved]
  - Sneezing [Recovered/Resolved]
  - Constipation [Recovered/Resolved]
  - Delirium [Recovered/Resolved]
  - Drug ineffective [Recovered/Resolved]
  - Aggression [Recovered/Resolved]

NARRATIVE: CASE EVENT DATE: 20181208
